FAERS Safety Report 7276369-X (Version None)
Quarter: 2011Q1

REPORT INFORMATION
  Report Type: 
  Country: None (occurrence: None)
  Receive Date: 20110204
  Receipt Date: 20110202
  Transmission Date: 20110831
  Serious: Yes (Life-Threatening, Other)
  Sender: FDA-Public Use
  Company Number: PHHO2009FR13016

PATIENT
  Sex: Female
  Weight: 64 kg

DRUGS (8)
  1. STI571/CGP57148B [Suspect]
     Dosage: UNK
     Dates: start: 20090831
  2. VFEND [Suspect]
  3. DOXORUBICIN [Concomitant]
     Indication: ACUTE LYMPHOCYTIC LEUKAEMIA
     Dosage: 92 MG, QD
     Route: 042
     Dates: start: 20090802, end: 20090802
  4. STI571/CGP57148B [Suspect]
     Indication: ACUTE LYMPHOCYTIC LEUKAEMIA
     Dosage: 800 MG, QD
     Route: 048
     Dates: start: 20090730, end: 20090802
  5. ENDOXAN [Suspect]
     Indication: ACUTE LYMPHOCYTIC LEUKAEMIA
     Dosage: 550 MG, QD
     Route: 042
     Dates: start: 20090730, end: 20090801
  6. VINCRISTINE [Concomitant]
     Indication: ACUTE LYMPHOCYTIC LEUKAEMIA
     Dosage: 2 MG, QD
     Route: 042
     Dates: start: 20090802, end: 20090802
  7. STI571/CGP57148B [Suspect]
     Dosage: UNK
     Dates: start: 20090803, end: 20090830
  8. NEXIUM [Suspect]

REACTIONS (6)
  - LIVER FUNCTION TEST ABNORMAL [None]
  - PULMONARY EMBOLISM [None]
  - ASPERGILLOSIS [None]
  - CYTOLYTIC HEPATITIS [None]
  - THROMBOPHLEBITIS SUPERFICIAL [None]
  - STENT PLACEMENT [None]
